FAERS Safety Report 18794464 (Version 1)
Quarter: 2021Q1

REPORT INFORMATION
  Report Type: Spontaneous
  Country: CN (occurrence: CN)
  Receive Date: 20210127
  Receipt Date: 20210127
  Transmission Date: 20210419
  Serious: Yes (Other)
  Sender: FDA-Public Use
  Company Number: CN-TOLMAR, INC.-21CN025085

PATIENT
  Age: 23 Year
  Sex: Female

DRUGS (4)
  1. SODIUM VALPROATE [Concomitant]
     Active Substance: VALPROATE SODIUM
     Indication: SEIZURE
     Dosage: 500 MG, BID
     Route: 048
  2. ACYCLOVIR. [Suspect]
     Active Substance: ACYCLOVIR
     Indication: HERPES SIMPLEX ENCEPHALITIS
     Dosage: 10 MG/KG, EVERY 8 HOURS
     Route: 042
  3. IMMUNOGLOBULIN I.V [Suspect]
     Active Substance: HUMAN IMMUNOGLOBULIN G
     Indication: HERPES SIMPLEX ENCEPHALITIS
     Dosage: 0.4 G/KG, QD
     Route: 042
  4. METHYLPREDNISOLONE. [Suspect]
     Active Substance: METHYLPREDNISOLONE
     Indication: HERPES SIMPLEX ENCEPHALITIS
     Dosage: 1000 MG, QD
     Route: 042

REACTIONS (1)
  - Generalised tonic-clonic seizure [Recovered/Resolved]
